FAERS Safety Report 6820147-X (Version None)
Quarter: 2010Q3

REPORT INFORMATION
  Report Type: 
  Country: None (occurrence: None)
  Receive Date: 20100707
  Receipt Date: 20100625
  Transmission Date: 20110219
  Serious: Yes (Hospitalization)
  Sender: FDA-Public Use
  Company Number: JP-MERCK-1006USA00795

PATIENT
  Age: 32 Year
  Sex: Female
  Weight: 69 kg

DRUGS (22)
  1. PEPCID RPD [Suspect]
     Indication: GASTRITIS
     Route: 048
     Dates: start: 20100512, end: 20100523
  2. PEPCID RPD [Suspect]
     Indication: OESOPHAGITIS
     Route: 048
     Dates: start: 20100512, end: 20100523
  3. PRIMPERAN TAB [Suspect]
     Indication: GASTRITIS
     Route: 048
     Dates: start: 20100512, end: 20100523
  4. PRIMPERAN TAB [Suspect]
     Indication: OESOPHAGITIS
     Route: 048
     Dates: start: 20100512, end: 20100523
  5. LUVOX [Suspect]
     Indication: DEPRESSION
     Route: 048
     Dates: start: 20081202, end: 20090520
  6. LUVOX [Suspect]
     Route: 048
     Dates: start: 20100118, end: 20100523
  7. PAXIL [Concomitant]
     Indication: DEPRESSION
     Route: 065
     Dates: start: 20081104
  8. LEVOTOMIN (LEVOMEPROMAZINE MALEATE) [Concomitant]
     Indication: DEPRESSION
     Route: 065
     Dates: start: 20081104
  9. HALCION [Concomitant]
     Indication: DEPRESSION
     Route: 065
     Dates: start: 20081104, end: 20100524
  10. MUCOSTA [Suspect]
     Indication: GASTRITIS
     Route: 048
     Dates: start: 20100512, end: 20100523
  11. MUCOSTA [Suspect]
     Indication: OESOPHAGITIS
     Route: 048
     Dates: start: 20100512, end: 20100523
  12. ZYPREXA [Concomitant]
     Indication: DEPRESSION
     Route: 065
     Dates: start: 20081104, end: 20100526
  13. ROHYPNOL [Concomitant]
     Route: 065
     Dates: start: 20080422, end: 20090714
  14. MARZULENE-S [Concomitant]
     Route: 065
     Dates: start: 20081104, end: 20100523
  15. LAC-B [Concomitant]
     Route: 065
     Dates: start: 20080422, end: 20090211
  16. KONSUBEN [Concomitant]
     Route: 065
     Dates: start: 20100527, end: 20100527
  17. LIPIDIL [Concomitant]
     Indication: HYPERLIPIDAEMIA
     Route: 065
     Dates: start: 20081104, end: 20100523
  18. URDENACIN [Concomitant]
     Route: 065
     Dates: start: 20100525, end: 20100601
  19. NAUZELIN [Suspect]
     Indication: GASTRITIS
     Route: 048
     Dates: start: 20100409, end: 20100416
  20. NAUZELIN [Suspect]
     Route: 048
     Dates: start: 20100512, end: 20100523
  21. NAUZELIN [Suspect]
     Indication: OESOPHAGITIS
     Route: 048
     Dates: start: 20100409, end: 20100416
  22. NAUZELIN [Suspect]
     Route: 048
     Dates: start: 20100512, end: 20100523

REACTIONS (1)
  - LIVER DISORDER [None]
